FAERS Safety Report 11178539 (Version 1)
Quarter: 2015Q2

REPORT INFORMATION
  Report Type: Spontaneous
  Country: JP (occurrence: JP)
  Receive Date: 20150610
  Receipt Date: 20150610
  Transmission Date: 20150821
  Serious: Yes (Hospitalization)
  Sender: FDA-Public Use
  Company Number: JP-SA-2015SA033574

PATIENT
  Age: 47 Year
  Sex: Female
  Weight: 42 kg

DRUGS (24)
  1. ELPLAT [Suspect]
     Active Substance: OXALIPLATIN
     Indication: RECTAL CANCER
     Dosage: FOLFOX 4 REGIMEN
     Route: 041
     Dates: start: 20150121, end: 20150121
  2. ELPLAT [Suspect]
     Active Substance: OXALIPLATIN
     Indication: RECTAL CANCER
     Dosage: FOLFOX 6 REGIMEN
     Route: 041
     Dates: start: 20150219, end: 20150219
  3. 5-FU [Concomitant]
     Active Substance: FLUOROURACIL
     Route: 041
     Dates: start: 20150107, end: 20150107
  4. 5-FU [Concomitant]
     Active Substance: FLUOROURACIL
     Route: 040
     Dates: start: 20150205, end: 20150205
  5. NEOPHYLLIN [Concomitant]
     Dates: start: 20150305, end: 20150305
  6. ELPLAT [Suspect]
     Active Substance: OXALIPLATIN
     Indication: RECTAL CANCER
     Dosage: FOLFOX 4 REGIMEN
     Route: 041
     Dates: start: 20150107, end: 20150107
  7. CALCIUM LEVOFOLINATE [Concomitant]
     Active Substance: LEVOLEUCOVORIN CALCIUM
     Dates: start: 20150107, end: 20150107
  8. 5-FU [Concomitant]
     Active Substance: FLUOROURACIL
     Route: 041
     Dates: start: 20150121, end: 20150121
  9. 5-FU [Concomitant]
     Active Substance: FLUOROURACIL
     Route: 040
     Dates: start: 20150121, end: 20150121
  10. 5-FU [Concomitant]
     Active Substance: FLUOROURACIL
     Route: 040
     Dates: start: 20150107, end: 20150107
  11. 5-FU [Concomitant]
     Active Substance: FLUOROURACIL
     Dosage: D1-D2
     Route: 041
     Dates: start: 20150205, end: 20150205
  12. SOLU-CORTEF [Concomitant]
     Active Substance: HYDROCORTISONE SODIUM SUCCINATE
     Dates: start: 20150305, end: 20150305
  13. ELPLAT [Suspect]
     Active Substance: OXALIPLATIN
     Indication: RECTAL CANCER
     Dosage: FOLFOX 6 REGIMEN
     Route: 041
     Dates: start: 20150205, end: 20150205
  14. CALCIUM LEVOFOLINATE [Concomitant]
     Active Substance: LEVOLEUCOVORIN CALCIUM
     Dates: start: 20150121, end: 20150121
  15. VECTIBIX [Concomitant]
     Active Substance: PANITUMUMAB
     Dates: start: 20150205, end: 20150205
  16. DOPAMINE [Concomitant]
     Active Substance: DOPAMINE\DOPAMINE HYDROCHLORIDE
     Dates: start: 20150305, end: 20150305
  17. CALCIUM LEVOFOLINATE [Concomitant]
     Active Substance: LEVOLEUCOVORIN CALCIUM
     Dates: start: 20150305, end: 20150305
  18. 5-FU [Concomitant]
     Active Substance: FLUOROURACIL
     Route: 041
     Dates: start: 20150305, end: 20150305
  19. 5-FU [Concomitant]
     Active Substance: FLUOROURACIL
     Route: 040
     Dates: start: 20150305, end: 20150305
  20. HANP [Concomitant]
     Active Substance: CARPERITIDE
     Dates: start: 20150305, end: 20150305
  21. ELPLAT [Suspect]
     Active Substance: OXALIPLATIN
     Indication: RECTAL CANCER
     Dosage: FOLFOX 6 REGIMEN
     Route: 041
     Dates: start: 20150305, end: 20150305
  22. CALCIUM LEVOFOLINATE [Concomitant]
     Active Substance: LEVOLEUCOVORIN CALCIUM
     Dates: start: 20150205, end: 20150205
  23. VECTIBIX [Concomitant]
     Active Substance: PANITUMUMAB
     Dates: start: 20150121, end: 20150121
  24. VECTIBIX [Concomitant]
     Active Substance: PANITUMUMAB
     Dates: start: 20150305, end: 20150305

REACTIONS (3)
  - Cardiomyopathy [Recovered/Resolved]
  - Pulmonary oedema [Recovered/Resolved]
  - Anaphylactic shock [Recovered/Resolved]

NARRATIVE: CASE EVENT DATE: 20150305
